FAERS Safety Report 13827302 (Version 1)
Quarter: 2017Q3

REPORT INFORMATION
  Report Type: Spontaneous
  Country: US (occurrence: US)
  Receive Date: 20170802
  Receipt Date: 20170802
  Transmission Date: 20171127
  Serious: No
  Sender: FDA-Public Use
  Company Number: US-ROCHE-606888

PATIENT
  Age: 56 Year
  Sex: Male

DRUGS (3)
  1. CHARCOAL [Concomitant]
     Active Substance: ACTIVATED CHARCOAL
     Dosage: REPORTED AS 8 CHARCOAL PILLS DAILY
     Route: 065
  2. BONIVA [Suspect]
     Active Substance: IBANDRONATE SODIUM
     Indication: OSTEOPOROSIS
     Route: 048
  3. IRON [Concomitant]
     Active Substance: IRON
     Dosage: REPORTED AS 3 IRON PILLS DAILY
     Route: 065

REACTIONS (4)
  - Arthralgia [Not Recovered/Not Resolved]
  - Faeces discoloured [Unknown]
  - Dry mouth [Unknown]
  - Dyspepsia [Recovering/Resolving]

NARRATIVE: CASE EVENT DATE: 20090106
